FAERS Safety Report 9788046 (Version 1)
Quarter: 2013Q4

REPORT INFORMATION
  Report Type: Spontaneous
  Country: IT (occurrence: IT)
  Receive Date: 20131230
  Receipt Date: 20131230
  Transmission Date: 20140711
  Serious: Yes (Other)
  Sender: FDA-Public Use
  Company Number: IT-TEVA-453003ISR

PATIENT
  Age: 87 Year
  Sex: Female
  Weight: 62 kg

DRUGS (1)
  1. OLANZAPINE TEVA 5 MG [Suspect]
     Indication: MENTAL DISORDER
     Route: 048
     Dates: start: 20130923, end: 20131001

REACTIONS (4)
  - Delirium [Unknown]
  - Drug ineffective [Unknown]
  - Agitation [Unknown]
  - Hallucination [Unknown]
